FAERS Safety Report 17571518 (Version 1)
Quarter: 2020Q1

REPORT INFORMATION
  Report Type: Spontaneous
  Country: US (occurrence: US)
  Receive Date: 20200323
  Receipt Date: 20200323
  Transmission Date: 20200409
  Serious: No
  Sender: FDA-Public Use
  Company Number: US-LEXICON PHARMACEUTICALS, INC-20-1606-00205

PATIENT
  Age: 58 Year
  Sex: Female

DRUGS (2)
  1. LUTATHERA [Concomitant]
     Active Substance: LUTETIUM OXODOTREOTIDE LU-177
  2. XERMELO [Suspect]
     Active Substance: TELOTRISTAT ETHYL
     Indication: CARCINOID SYNDROME
     Dates: start: 20191225

REACTIONS (1)
  - Constipation [Unknown]
